FAERS Safety Report 7562566-2 (Version None)
Quarter: 2011Q2

REPORT INFORMATION
  Report Type: 
  Country: None (occurrence: None)
  Receive Date: 20110622
  Receipt Date: 20110615
  Transmission Date: 20111010
  Serious: Yes (Other)
  Sender: FDA-Public Use
  Company Number: JP-AMGEN-JPNSP2011028609

PATIENT
  Age: 52 Year
  Sex: Female

DRUGS (2)
  1. ENBREL [Suspect]
     Indication: RHEUMATOID ARTHRITIS
     Dosage: 25 MG, WEEKLY
     Dates: start: 20110107
  2. RHEUMATREX [Concomitant]
     Dosage: 8 MG, WEEKLY

REACTIONS (3)
  - TINEA PEDIS [None]
  - HAEMARTHROSIS [None]
  - CONTUSION [None]
